FAERS Safety Report 9368736 (Version 1)
Quarter: 2013Q2

REPORT INFORMATION
  Report Type: Spontaneous
  Country: CN (occurrence: CN)
  Receive Date: 20130626
  Receipt Date: 20130626
  Transmission Date: 20140414
  Serious: Yes (Other)
  Sender: FDA-Public Use
  Company Number: CN-ASTRAZENECA-2013SE44731

PATIENT
  Age: 70 Year
  Sex: Male

DRUGS (3)
  1. CASODEX [Suspect]
     Indication: PROSTATE CANCER
     Route: 048
     Dates: start: 20120401, end: 20120917
  2. CASODEX [Suspect]
     Indication: PROSTATE CANCER
     Route: 048
     Dates: start: 20120918, end: 20121031
  3. DIPHERELINE [Concomitant]
     Dates: start: 20100401, end: 20121031

REACTIONS (1)
  - Malignant neoplasm progression [Not Recovered/Not Resolved]
